FAERS Safety Report 7428542-5 (Version None)
Quarter: 2011Q2

REPORT INFORMATION
  Report Type: 
  Country: None (occurrence: None)
  Receive Date: 20110421
  Receipt Date: 20110419
  Transmission Date: 20111010
  Serious: Yes (Other)
  Sender: FDA-Public Use
  Company Number: DE-SANOFI-AVENTIS-2011SA024036

PATIENT
  Sex: Female

DRUGS (1)
  1. FERRLECIT [Suspect]
     Route: 040

REACTIONS (2)
  - INJECTION SITE THROMBOSIS [None]
  - INFLAMMATION [None]
